FAERS Safety Report 6620142-X (Version None)
Quarter: 2010Q1

REPORT INFORMATION
  Report Type: 
  Country: None (occurrence: None)
  Receive Date: 20100309
  Receipt Date: 20100303
  Transmission Date: 20100710
  Serious: Yes (Death, Hospitalization)
  Sender: FDA-Public Use
  Company Number: FR-ELI_LILLY_AND_COMPANY-FR201003000939

PATIENT
  Sex: Female

DRUGS (4)
  1. GEMZAR [Suspect]
     Indication: MALIGNANT PERITONEAL NEOPLASM
     Dosage: UNK, OTHER
     Route: 042
     Dates: start: 20091027, end: 20091119
  2. LOVENOX [Concomitant]
     Indication: PROPHYLAXIS
     Dates: start: 20091016, end: 20091106
  3. FUROSEMIDE [Concomitant]
     Dates: start: 20091027
  4. DEPAKENE [Concomitant]
     Dates: start: 20090929

REACTIONS (5)
  - ABDOMINAL PAIN UPPER [None]
  - ANAEMIA [None]
  - DEATH [None]
  - RECTAL HAEMORRHAGE [None]
  - THROMBOCYTOPENIA [None]
